FAERS Safety Report 5491843-4 (Version None)
Quarter: 2007Q4

REPORT INFORMATION
  Report Type: 
  Country: None (occurrence: None)
  Receive Date: 20071018
  Receipt Date: 20071009
  Transmission Date: 20080405
  Serious: Yes (Death)
  Sender: FDA-Public Use
  Company Number: 2007-04568

PATIENT
  Age: 30 Year
  Sex: Male
  Weight: 98 kg

DRUGS (1)
  1. COLCHICUM JTL LIQ [Suspect]
     Indication: SUICIDE ATTEMPT
     Dosage: 50 TABLETS,30MG(MAX DOSE 39.6MG), ORAL
     Route: 048

REACTIONS (5)
  - CARDIAC ARREST [None]
  - CIRCULATORY COLLAPSE [None]
  - COMPLETED SUICIDE [None]
  - DRUG TOXICITY [None]
  - INTENTIONAL OVERDOSE [None]
